FAERS Safety Report 13985806 (Version 2)
Quarter: 2018Q1

REPORT INFORMATION
  Report Type: Spontaneous
  Country: US (occurrence: US)
  Receive Date: 20170919
  Receipt Date: 20180110
  Transmission Date: 20180508
  Serious: No
  Sender: FDA-Public Use
  Company Number: US-PFIZER INC-2017397911

PATIENT
  Age: 75 Year
  Sex: Female

DRUGS (1)
  1. METHOTREXATE SODIUM. [Suspect]
     Active Substance: METHOTREXATE SODIUM
     Indication: RHEUMATOID ARTHRITIS
     Dosage: 0.8 ML, WEEKLY (50 MG/2 ML INJECTION SOLUTION: INJECT 0.8 ML UNDER THE SKIN EVERY WEEK AS DIRECTED)
     Route: 058

REACTIONS (4)
  - Drug ineffective [Unknown]
  - Synovitis [Unknown]
  - Platelet count increased [Unknown]
  - Red cell distribution width increased [Unknown]
